FAERS Safety Report 11995414 (Version 3)
Quarter: 2016Q1

REPORT INFORMATION
  Report Type: Spontaneous
  Country: JP (occurrence: JP)
  Receive Date: 20160203
  Receipt Date: 20160222
  Transmission Date: 20160526
  Serious: Yes (Other)
  Sender: FDA-Public Use
  Company Number: JP-GLAXOSMITHKLINE-JP2016JPN013357

PATIENT
  Age: 12 Year
  Sex: Male
  Weight: 43 kg

DRUGS (5)
  1. RELENZA [Suspect]
     Active Substance: ZANAMIVIR
     Indication: INFLUENZA
     Dosage: 10 MG, BID
     Route: 055
     Dates: start: 20160128, end: 20160201
  2. MEPTIN [Concomitant]
     Active Substance: PROCATEROL HYDROCHLORIDE
     Indication: COUGH
     Dosage: 25 ?G, BID
     Dates: start: 20160128, end: 20160203
  3. CARBOCISTEINE [Concomitant]
     Active Substance: CARBOCYSTEINE
     Indication: PRODUCTIVE COUGH
     Dosage: 500 MG, BID
     Dates: start: 20160128, end: 20160203
  4. COCARL [Concomitant]
     Active Substance: ACETAMINOPHEN
     Indication: ANTIPYRESIS
     Dosage: 200 MG, PRN
     Dates: start: 20160128
  5. COCARL [Concomitant]
     Active Substance: ACETAMINOPHEN
     Indication: ANALGESIC THERAPY

REACTIONS (2)
  - Abnormal behaviour [Recovered/Resolved]
  - Delirium febrile [Recovered/Resolved]

NARRATIVE: CASE EVENT DATE: 20160129
